FAERS Safety Report 14753859 (Version 1)
Quarter: 2018Q2

REPORT INFORMATION
  Report Type: Spontaneous
  Country: US (occurrence: US)
  Receive Date: 20180406
  Receipt Date: 20180406
  Transmission Date: 20180711
  Serious: No
  Sender: FDA-Public Use
  Company Number: None

PATIENT
  Age: 81 Year
  Sex: Female
  Weight: 68.49 kg

DRUGS (7)
  1. LISINOPRIL 20MG TABLET [Suspect]
     Active Substance: LISINOPRIL
     Dates: start: 20180312, end: 20180315
  2. ATORVASTATIN [Concomitant]
     Active Substance: ATORVASTATIN
  3. ESCITALOPRAM [Concomitant]
     Active Substance: ESCITALOPRAM OXALATE
  4. PANTOPRAZOLE SODIUM TER [Concomitant]
  5. LISINOPRIL 20MG TABLET [Suspect]
     Active Substance: LISINOPRIL
     Indication: BLOOD PRESSURE MEASUREMENT
     Route: 048
     Dates: start: 20170905, end: 20171205
  6. AMLODIPINE BESYLATE. [Concomitant]
     Active Substance: AMLODIPINE BESYLATE
  7. FENOFIBRATE. [Concomitant]
     Active Substance: FENOFIBRATE

REACTIONS (4)
  - Drug dose omission [None]
  - Visual impairment [None]
  - Photophobia [None]
  - Photopsia [None]

NARRATIVE: CASE EVENT DATE: 20170905
